FAERS Safety Report 25793709 (Version 1)
Quarter: 2025Q3

REPORT INFORMATION
  Report Type: Spontaneous
  Country: US (occurrence: US)
  Receive Date: 20250912
  Receipt Date: 20250912
  Transmission Date: 20251021
  Serious: No
  Sender: BOSTON SCIENTIFIC
  Company Number: US-BIOCOMPATIBLES UK LTD-2018BTG01487

PATIENT
  Age: 54 Year
  Sex: Female

DRUGS (1)
  1. VARITHENA [Suspect]
     Active Substance: POLIDOCANOL
     Indication: Varicose vein
     Dates: start: 20180130, end: 20180130

REACTIONS (4)
  - Wrong technique in product usage process [Unknown]
  - Treatment noncompliance [Unknown]
  - Inadequate aseptic technique in use of product [Unknown]
  - Product preparation error [Unknown]

NARRATIVE: CASE EVENT DATE: 20180129
